FAERS Safety Report 4518647-0 (Version None)
Quarter: 2004Q4

REPORT INFORMATION
  Report Type: 
  Country: None (occurrence: None)
  Receive Date: 20041029
  Receipt Date: 20040818
  Transmission Date: 20050328
  Serious: No
  Sender: FDA-Public Use
  Company Number: 200416326US

PATIENT
  Age: 76 Year
  Sex: Male

DRUGS (9)
  1. KETEK [Suspect]
     Indication: BRONCHITIS
     Dosage: 800 MG QD PO
     Route: 048
     Dates: start: 20040816, end: 20040818
  2. KETEK [Suspect]
     Indication: RESPIRATORY TRACT INFECTION
     Dosage: 800 MG QD PO
     Route: 048
     Dates: start: 20040816, end: 20040818
  3. KETEK [Suspect]
     Indication: BRONCHITIS
     Dosage: 400 MG QD PO
     Route: 048
     Dates: start: 20040819
  4. KETEK [Suspect]
     Indication: RESPIRATORY TRACT INFECTION
     Dosage: 400 MG QD PO
     Route: 048
     Dates: start: 20040819
  5. DIOVAN [Concomitant]
  6. AMLODIPINE BESILATE(9NORVASC) [Concomitant]
  7. PLAVIX [Concomitant]
  8. ZETIA [Concomitant]
  9. CLARITHOROMYCIN (BIAXIN) [Concomitant]

REACTIONS (2)
  - BLOOD PRESSURE DECREASED [None]
  - DIZZINESS [None]
